FAERS Safety Report 9145420 (Version 1)
Quarter: 2013Q1

REPORT INFORMATION
  Report Type: Spontaneous
  Country: US (occurrence: None)
  Receive Date: 20130226
  Receipt Date: 20130226
  Transmission Date: 20140127
  Serious: Yes (Hospitalization)
  Sender: FDA-Public Use
  Company Number: None

PATIENT
  Age: 57 Year
  Sex: Female

DRUGS (2)
  1. AFINITOR [Suspect]
     Indication: NEOPLASM MALIGNANT
     Dosage: 5 MG DAILY PO
     Route: 048
     Dates: start: 20120919, end: 20130128
  2. AFINITOR [Suspect]
     Indication: NEOPLASM MALIGNANT
     Dosage: 2.5MG DAILY PO
     Route: 048
     Dates: start: 20120919, end: 20130128

REACTIONS (2)
  - Dyspnoea [None]
  - Fluid retention [None]
